FAERS Safety Report 5990115-9 (Version None)
Quarter: 2008Q4

REPORT INFORMATION
  Report Type: 
  Country: None (occurrence: None)
  Receive Date: 20081211
  Receipt Date: 20081203
  Transmission Date: 20090506
  Serious: Yes (Other)
  Sender: FDA-Public Use
  Company Number: DE-ALLERGAN-0815560US

PATIENT
  Sex: Female

DRUGS (2)
  1. INFLANEFRAN FORTE [Suspect]
     Indication: POSTOPERATIVE CARE
     Route: 047
     Dates: start: 20081128
  2. ANTIHYPERTENSIVES [Concomitant]

REACTIONS (1)
  - BLOOD PRESSURE INCREASED [None]
